FAERS Safety Report 8432889-3 (Version None)
Quarter: 2012Q2

REPORT INFORMATION
  Report Type: 
  Country: None (occurrence: None)
  Receive Date: 20120613
  Receipt Date: 20120605
  Transmission Date: 20120825
  Serious: Yes (Life-Threatening, Hospitalization)
  Sender: FDA-Public Use
  Company Number: DE-ROCHE-1065739

PATIENT
  Sex: Female
  Weight: 80 kg

DRUGS (1)
  1. HERCEPTIN [Suspect]
     Indication: BREAST CANCER
     Route: 065
     Dates: start: 20120201, end: 20120502

REACTIONS (3)
  - CARDIOMYOPATHY [None]
  - CARDIAC FAILURE [None]
  - ATRIOVENTRICULAR BLOCK [None]
